FAERS Safety Report 25013417 (Version 2)
Quarter: 2025Q1

REPORT INFORMATION
  Report Type: Spontaneous
  Country: DE (occurrence: DE)
  Receive Date: 20250226
  Receipt Date: 20250321
  Transmission Date: 20250409
  Serious: Yes (Other)
  Sender: TEVA
  Company Number: DE-TEVA-VS-3302389

PATIENT
  Age: 39 Year
  Sex: Female

DRUGS (2)
  1. CEFUROXIME [Suspect]
     Active Substance: CEFUROXIME
     Indication: Antibiotic therapy
     Route: 065
  2. DOXYCYCLINE [Suspect]
     Active Substance: DOXYCYCLINE
     Indication: Antibiotic therapy
     Route: 065

REACTIONS (6)
  - Drug hypersensitivity [Unknown]
  - Drug eruption [Unknown]
  - Fixed eruption [Unknown]
  - Palpitations [Unknown]
  - Blood pressure decreased [Unknown]
  - Dizziness [Unknown]
